FAERS Safety Report 23864093 (Version 1)
Quarter: 2024Q2

REPORT INFORMATION
  Report Type: Spontaneous
  Country: MX (occurrence: MX)
  Receive Date: 20240516
  Receipt Date: 20240516
  Transmission Date: 20240716
  Serious: Yes (Hospitalization)
  Sender: FDA-Public Use
  Company Number: MX-Eisai-EC-2024-165464

PATIENT
  Age: 44 Year
  Sex: Female

DRUGS (1)
  1. LENVATINIB [Suspect]
     Active Substance: LENVATINIB
     Indication: Thyroid cancer
     Route: 065
     Dates: start: 20240220

REACTIONS (5)
  - Hypertensive crisis [Unknown]
  - Proteinuria [Unknown]
  - Blood creatinine increased [Unknown]
  - Asthenia [Unknown]
  - Condition aggravated [Unknown]
